FAERS Safety Report 7216280-3 (Version None)
Quarter: 2011Q1

REPORT INFORMATION
  Report Type: 
  Country: None (occurrence: None)
  Receive Date: 20110107
  Receipt Date: 20110103
  Transmission Date: 20110831
  Serious: Yes (Hospitalization)
  Sender: FDA-Public Use
  Company Number: FR-JNJFOC-20110100370

PATIENT
  Sex: Female

DRUGS (4)
  1. MEMANTINE HCL [Suspect]
     Indication: ILL-DEFINED DISORDER
     Route: 048
  2. ZYPREXA [Concomitant]
  3. REMINYL LP [Suspect]
     Indication: ILL-DEFINED DISORDER
     Route: 048
  4. LEPTICUR [Suspect]
     Indication: ILL-DEFINED DISORDER

REACTIONS (5)
  - FALL [None]
  - DISTURBANCE IN ATTENTION [None]
  - RHABDOMYOLYSIS [None]
  - GENERAL PHYSICAL HEALTH DETERIORATION [None]
  - CONFUSIONAL STATE [None]
